FAERS Safety Report 6749534-5 (Version None)
Quarter: 2010Q2

REPORT INFORMATION
  Report Type: 
  Country: None (occurrence: None)
  Receive Date: 20100527
  Receipt Date: 20100527
  Transmission Date: 20101027
  Serious: No
  Sender: FDA-Public Use
  Company Number: None

PATIENT
  Age: 61 Year
  Sex: Female
  Weight: 77.1115 kg

DRUGS (1)
  1. LEVAQUIN [Suspect]
     Indication: INFECTION
     Dosage: 10 DAYS 1 OR 2 PILL A DAY
     Dates: start: 20100301

REACTIONS (3)
  - JOINT STIFFNESS [None]
  - JOINT SWELLING [None]
  - TENDONITIS [None]
